FAERS Safety Report 24900804 (Version 1)
Quarter: 2025Q1

REPORT INFORMATION
  Report Type: Spontaneous
  Country: US (occurrence: US)
  Receive Date: 20250129
  Receipt Date: 20250129
  Transmission Date: 20250408
  Serious: Yes (Hospitalization)
  Sender: PARI RESPIRATORY EQUIPMENT
  Company Number: US-PARI RESPIRATORY EQUIPMENT, INC.-2025PAR00007

PATIENT
  Sex: Male

DRUGS (7)
  1. KITABIS PAK [Suspect]
     Active Substance: TOBRAMYCIN
     Indication: Cystic fibrosis
     Dates: start: 201805
  2. KITABIS PAK [Suspect]
     Active Substance: TOBRAMYCIN
     Indication: Wheezing
  3. KITABIS PAK [Suspect]
     Active Substance: TOBRAMYCIN
     Indication: Cerebral palsy
  4. PULMOZYME [Concomitant]
     Active Substance: DORNASE ALFA
  5. SODIUM CHLORIDE [Concomitant]
     Active Substance: SODIUM CHLORIDE
  6. COLISTIMETHATE SODIUM [Concomitant]
     Active Substance: COLISTIMETHATE SODIUM
  7. STERILE WATER [Concomitant]
     Active Substance: WATER

REACTIONS (1)
  - Hospitalisation [Not Recovered/Not Resolved]
